FAERS Safety Report 20136956 (Version 1)
Quarter: 2021Q4

REPORT INFORMATION
  Report Type: Spontaneous
  Country: US (occurrence: None)
  Receive Date: 20211201
  Receipt Date: 20211201
  Transmission Date: 20220303
  Serious: Yes (Other)
  Sender: FDA-Public Use
  Company Number: None

PATIENT
  Age: 30 Year
  Sex: Male

DRUGS (2)
  1. SUBLOCADE [Suspect]
     Active Substance: BUPRENORPHINE
     Indication: Drug use disorder
     Dosage: OTHER FREQUENCY : EVERY 28 DAYS;?
     Route: 058
  2. SUBLOCADE [Concomitant]
     Active Substance: BUPRENORPHINE
     Dates: start: 20211123, end: 20211123

REACTIONS (2)
  - Injection site pain [None]
  - Injection site necrosis [None]

NARRATIVE: CASE EVENT DATE: 20211123
